FAERS Safety Report 7280346-2 (Version None)
Quarter: 2011Q1

REPORT INFORMATION
  Report Type: 
  Country: None (occurrence: None)
  Receive Date: 20110208
  Receipt Date: 20110126
  Transmission Date: 20110831
  Serious: Yes (Hospitalization)
  Sender: FDA-Public Use
  Company Number: US-ELI_LILLY_AND_COMPANY-US201012003714

PATIENT
  Sex: Female

DRUGS (3)
  1. FORTEO [Suspect]
     Indication: OSTEOPOROSIS
     Dosage: 20 UG, DAILY (1/D)
  2. FORTEO [Suspect]
     Dosage: 20 UG, DAILY (1/D)
  3. ANTIBIOTICS [Concomitant]
     Dosage: UNK, UNKNOWN
     Dates: start: 20101101

REACTIONS (3)
  - VAGINAL HAEMORRHAGE [None]
  - DRUG DOSE OMISSION [None]
  - ABDOMINAL OPERATION [None]
